FAERS Safety Report 7054504-6 (Version None)
Quarter: 2010Q4

REPORT INFORMATION
  Report Type: 
  Country: None (occurrence: None)
  Receive Date: 20101020
  Receipt Date: 20100819
  Transmission Date: 20110411
  Serious: No
  Sender: FDA-Public Use
  Company Number: US-ALLERGAN-1007621US

PATIENT
  Age: 65 Year
  Sex: Female

DRUGS (5)
  1. LATISSE [Suspect]
     Indication: GROWTH OF EYELASHES
     Dosage: 1 GTT, QHS
     Route: 061
  2. ANTIDEPRESSANT [Concomitant]
     Indication: DEPRESSION
     Dosage: UNK
  3. PREVACID [Concomitant]
     Indication: GASTROOESOPHAGEAL REFLUX DISEASE
     Dosage: UNK
  4. ALIVE [Concomitant]
     Indication: OSTEOARTHRITIS
     Dosage: UNK
  5. TYLENOL (CAPLET) [Concomitant]
     Indication: OSTEOARTHRITIS

REACTIONS (2)
  - DRY EYE [None]
  - SKIN DISCOLOURATION [None]
